FAERS Safety Report 21556911 (Version 1)
Quarter: 2022Q4

REPORT INFORMATION
  Report Type: Spontaneous
  Country: TR (occurrence: TR)
  Receive Date: 20221104
  Receipt Date: 20221104
  Transmission Date: 20230113
  Serious: Yes (Hospitalization)
  Sender: FDA-Public Use
  Company Number: TR-JNJFOC-20221061514

PATIENT
  Age: 22 Year
  Sex: Male

DRUGS (1)
  1. CONCERTA [Suspect]
     Active Substance: METHYLPHENIDATE HYDROCHLORIDE
     Indication: Drug abuse
     Dosage: 150-200 MG PER DAY, ANAL, AND NASAL
     Route: 065

REACTIONS (4)
  - Drug abuse [Unknown]
  - Drug diversion [Unknown]
  - Incorrect route of product administration [Unknown]
  - Aggression [Unknown]
